FAERS Safety Report 12320189 (Version 1)
Quarter: 2016Q2

REPORT INFORMATION
  Report Type: Spontaneous
  Country: JP (occurrence: JP)
  Receive Date: 20160430
  Receipt Date: 20160430
  Transmission Date: 20160815
  Serious: Yes (Disabling)
  Sender: FDA-Public Use
  Company Number: JP-ASTRAZENECA-2016SE23602

PATIENT
  Age: 557 Month
  Sex: Female
  Weight: 59 kg

DRUGS (5)
  1. MAGLAX [Suspect]
     Active Substance: MAGNESIUM OXIDE
     Indication: CONSTIPATION
     Route: 048
     Dates: start: 20150403
  2. NOLVADEX [Suspect]
     Active Substance: TAMOXIFEN CITRATE
     Indication: BREAST CANCER FEMALE
     Route: 048
     Dates: start: 20150204, end: 20160226
  3. TSUMURA YOKUKANSAN EXTRACT GRANULES FOR ETHICAL USE [Suspect]
     Active Substance: HERBALS
     Indication: MENOPAUSAL SYMPTOMS
     Route: 048
     Dates: start: 20150707, end: 201512
  4. KAMISHOYOSAN /07987101/ [Suspect]
     Active Substance: HERBALS
     Indication: MENOPAUSAL SYMPTOMS
     Route: 048
     Dates: start: 20150707, end: 201512
  5. ZOLADEX LA [Suspect]
     Active Substance: GOSERELIN ACETATE
     Indication: BREAST CANCER FEMALE
     Route: 058
     Dates: start: 20150513, end: 20160413

REACTIONS (1)
  - Optic neuritis [Not Recovered/Not Resolved]

NARRATIVE: CASE EVENT DATE: 201602
